FAERS Safety Report 4410675-9 (Version None)
Quarter: 2004Q3

REPORT INFORMATION
  Report Type: 
  Country: None (occurrence: None)
  Receive Date: 20040726
  Receipt Date: 20040713
  Transmission Date: 20050211
  Serious: Yes (Hospitalization)
  Sender: FDA-Public Use
  Company Number: 2004047914

PATIENT
  Age: 67 Year
  Sex: Male
  Weight: 88.4514 kg

DRUGS (10)
  1. LIPITOR [Suspect]
     Indication: BLOOD CHOLESTEROL
     Dosage: ORAL
     Route: 048
     Dates: start: 19960101
  2. CELECOXIB (CELECOXIB) [Suspect]
     Indication: ARTHRALGIA
     Dosage: 200 MG (200 MG, 1 IN 1 D), ORAL
     Route: 048
  3. CELECOXIB (CELECOXIB) [Suspect]
     Indication: BURSITIS
     Dosage: 200 MG (200 MG, 1 IN 1 D), ORAL
     Route: 048
  4. NAPROXEN SODIUM [Suspect]
     Indication: ARTHRALGIA
     Dosage: (AS NEEDED), ORAL
     Route: 048
  5. NAPROXEN SODIUM [Suspect]
     Indication: BURSITIS
     Dosage: (AS NEEDED), ORAL
     Route: 048
  6. ALPRAZOLAM [Suspect]
     Indication: ANXIETY DISORDER
     Dosage: 0.5 MG (0.25 MG,2 IN 1 D), ORAL
     Route: 048
     Dates: start: 19940101
  7. DIOVAN HCT [Concomitant]
  8. DIGOXIN [Concomitant]
  9. ACETYLSALICYLIC ACID SRT [Concomitant]
  10. WARFARIN (WARFARIN) [Concomitant]

REACTIONS (5)
  - BURSITIS [None]
  - DYSPEPSIA [None]
  - HEART RATE IRREGULAR [None]
  - INTERNATIONAL NORMALISED RATIO ABNORMAL [None]
  - MYOCARDIAL INFARCTION [None]
